FAERS Safety Report 6075906-0 (Version None)
Quarter: 2009Q1

REPORT INFORMATION
  Report Type: 
  Country: None (occurrence: None)
  Receive Date: 20090209
  Receipt Date: 20090128
  Transmission Date: 20090719
  Serious: Yes (Other)
  Sender: FDA-Public Use
  Company Number: 1000003823

PATIENT
  Age: 51 Year
  Sex: Female
  Weight: 75 kg

DRUGS (3)
  1. ESCITALOPRAM OXALATE [Suspect]
     Dosage: (20 MG, ONCE), ORAL
     Route: 048
     Dates: start: 20090127, end: 20090127
  2. ALCOHOL [Suspect]
     Dosage: UNKNOWN AMOUNT OF ALCOHOL, ORAL
     Route: 048
     Dates: start: 20090127, end: 20090127
  3. ZOPICLON (7.5 MILLIGRAM, TABLETS) [Suspect]
     Dosage: (97.5 MG, ONCE), ORAL
     Route: 048
     Dates: start: 20090127, end: 20090127

REACTIONS (3)
  - ALCOHOL POISONING [None]
  - INTENTIONAL OVERDOSE [None]
  - SUICIDE ATTEMPT [None]
